FAERS Safety Report 12961479 (Version 1)
Quarter: 2016Q4

REPORT INFORMATION
  Report Type: Spontaneous
  Country: HU (occurrence: HU)
  Receive Date: 20161121
  Receipt Date: 20161121
  Transmission Date: 20170207
  Serious: Yes (Hospitalization)
  Sender: FDA-Public Use
  Company Number: HU-009507513-1611HUN004151

PATIENT
  Age: 58 Year
  Sex: Male

DRUGS (3)
  1. DIPROPHOS [Suspect]
     Active Substance: BECLOMETHASONE DIPROPIONATE\BETAMETHASONE SODIUM PHOSPHATE
     Indication: ARTHRITIS
     Dosage: 1 DF, UNK
     Route: 014
     Dates: start: 2008, end: 2008
  2. INSULIN [Concomitant]
     Active Substance: INSULIN NOS
     Indication: TYPE 2 DIABETES MELLITUS
  3. DIPROPHOS [Suspect]
     Active Substance: BECLOMETHASONE DIPROPIONATE\BETAMETHASONE SODIUM PHOSPHATE
     Dosage: 1 DF OF 7 MG/ML
     Route: 014
     Dates: start: 20161102, end: 20161102

REACTIONS (1)
  - Hiccups [Not Recovered/Not Resolved]

NARRATIVE: CASE EVENT DATE: 20161102
